FAERS Safety Report 19707375 (Version 1)
Quarter: 2021Q3

REPORT INFORMATION
  Report Type: Spontaneous
  Country: GB (occurrence: GB)
  Receive Date: 20210817
  Receipt Date: 20210817
  Transmission Date: 20211014
  Serious: Yes (Other)
  Sender: FDA-Public Use
  Company Number: GB-B.I. PHARMACEUTICALS,INC./RIDGEFIELD-2021-BI-121417

PATIENT
  Age: 47 Year
  Sex: Female
  Weight: 56 kg

DRUGS (14)
  1. METFORMIN [Concomitant]
     Active Substance: METFORMIN HYDROCHLORIDE
     Indication: PRODUCT USED FOR UNKNOWN INDICATION
     Dates: start: 20200304, end: 20210811
  2. NITROFURANTOIN. [Concomitant]
     Active Substance: NITROFURANTOIN
     Indication: URINARY TRACT INFECTION
     Dates: start: 20210810
  3. SENNA ALEXANDRINA [Concomitant]
     Active Substance: SENNA LEAF
     Indication: CONSTIPATION
     Dosage: TAKE AT NIGHT
     Dates: start: 20171023
  4. LAXIDO [Concomitant]
     Active Substance: POLYETHYLENE GLYCOL 3350\POTASSIUM CHLORIDE\SODIUM BICARBONATE\SODIUM CHLORIDE
     Indication: CONSTIPATION
     Dosage: TAKE 1?2 SACHETS DAILY
     Dates: start: 20170703
  5. BUTEC [Concomitant]
     Active Substance: BUPRENORPHINE
     Indication: PRODUCT USED FOR UNKNOWN INDICATION
     Dates: start: 20180319, end: 20210811
  6. OMEPRAZOLE. [Concomitant]
     Active Substance: OMEPRAZOLE
     Indication: PRODUCT USED FOR UNKNOWN INDICATION
     Dates: start: 20210811
  7. ONDANSETRON [Concomitant]
     Active Substance: ONDANSETRON
     Indication: ILLNESS
     Dosage: IF NEEDED
     Dates: start: 20171208
  8. PERINDOPRIL ERBUMINE. [Concomitant]
     Active Substance: PERINDOPRIL ERBUMINE
     Indication: PRODUCT USED FOR UNKNOWN INDICATION
     Dosage: BLOOD TEST 1 WEEK. HOME BPS 4 W...
     Dates: start: 20200220, end: 20210811
  9. PARACETAMOL [Concomitant]
     Active Substance: ACETAMINOPHEN
     Indication: PRODUCT USED FOR UNKNOWN INDICATION
     Dates: start: 20170703
  10. PREGABALIN. [Concomitant]
     Active Substance: PREGABALIN
     Indication: PRODUCT USED FOR UNKNOWN INDICATION
     Dates: start: 20210422, end: 20210811
  11. FLUCONAZOLE. [Concomitant]
     Active Substance: FLUCONAZOLE
     Indication: PRODUCT USED FOR UNKNOWN INDICATION
     Dosage: TAKE THE CAPSULE IMMEDIATELY AND USE THE CREAM
     Dates: start: 20210723, end: 20210730
  12. HUMULIN M3 [Concomitant]
     Active Substance: INSULIN HUMAN
     Indication: PRODUCT USED FOR UNKNOWN INDICATION
     Dosage: USE AS DIRECTED, 16 UNITS AT BREAKFAST AND 8 UN...
     Dates: start: 20210811
  13. JARDIANCE [Suspect]
     Active Substance: EMPAGLIFLOZIN
     Indication: PRODUCT USED FOR UNKNOWN INDICATION
     Dates: start: 20210409, end: 20210811
  14. ATORVASTATIN [Concomitant]
     Active Substance: ATORVASTATIN
     Indication: PRODUCT USED FOR UNKNOWN INDICATION
     Dosage: INCREASED DOSE FROM 2ND SEPT 20...
     Dates: start: 20200902

REACTIONS (1)
  - Diabetic ketoacidosis [Recovered/Resolved]

NARRATIVE: CASE EVENT DATE: 20210811
